FAERS Safety Report 21867831 (Version 1)
Quarter: 2023Q1

REPORT INFORMATION
  Report Type: Spontaneous
  Country: US (occurrence: US)
  Receive Date: 20230116
  Receipt Date: 20230116
  Transmission Date: 20230417
  Serious: Yes (Life-Threatening, Other)
  Sender: FDA-Public Use
  Company Number: US-002147023-NVSC2023US009380

PATIENT
  Sex: Female

DRUGS (1)
  1. ENTRESTO [Suspect]
     Active Substance: SACUBITRIL\VALSARTAN
     Indication: Product used for unknown indication
     Dosage: UNK UNK, BID (PRESCRIBED TO TAKE IN 2X A DAY)
     Route: 065

REACTIONS (5)
  - Near death experience [Unknown]
  - Gait disturbance [Unknown]
  - Blood pressure decreased [Unknown]
  - Fatigue [Unknown]
  - Asthenia [Unknown]
